FAERS Safety Report 23918725 (Version 3)
Quarter: 2024Q3

REPORT INFORMATION
  Report Type: Spontaneous
  Country: US (occurrence: US)
  Receive Date: 20240530
  Receipt Date: 20240703
  Transmission Date: 20241017
  Serious: Yes (Other)
  Sender: BRISTOL MYERS SQUIBB
  Company Number: US-BRISTOL-MYERS SQUIBB COMPANY-2024-086063

PATIENT
  Age: 55 Year
  Sex: Female
  Weight: 68.95 kg

DRUGS (1)
  1. REVLIMID [Suspect]
     Active Substance: LENALIDOMIDE
     Indication: Plasma cell myeloma
     Dosage: 3WEEKS ON 1 WEEK OFF, DAILY FOR 21 DAYS ON, THEN 7 DAYS OFF
     Route: 048

REACTIONS (6)
  - Muscular weakness [Not Recovered/Not Resolved]
  - Gait disturbance [Unknown]
  - Diarrhoea [Recovering/Resolving]
  - Fall [Not Recovered/Not Resolved]
  - Blood disorder [Unknown]
  - Bacterial infection [Recovering/Resolving]
